FAERS Safety Report 8120693-5 (Version None)
Quarter: 2012Q1

REPORT INFORMATION
  Report Type: 
  Country: None (occurrence: None)
  Receive Date: 20120207
  Receipt Date: 20120130
  Transmission Date: 20120608
  Serious: Yes (Other)
  Sender: FDA-Public Use
  Company Number: US-BAYER-2011-061177

PATIENT
  Age: 26 Year
  Sex: Female
  Weight: 93 kg

DRUGS (6)
  1. YAZ [Suspect]
     Indication: ACNE
     Dosage: UNK
     Dates: start: 20070101, end: 20090101
  2. YASMIN [Suspect]
     Indication: PREMENSTRUAL SYNDROME
  3. DROSPIRENONE AND ETHINYL ESTRADIOL [Suspect]
     Indication: ACNE
     Dosage: UNK
     Dates: start: 20070101, end: 20090101
  4. YASMIN [Suspect]
     Indication: ACNE
     Dosage: UNK
     Dates: start: 20070101, end: 20090101
  5. YAZ [Suspect]
     Indication: PREMENSTRUAL SYNDROME
  6. DROSPIRENONE AND ETHINYL ESTRADIOL [Suspect]
     Indication: PREMENSTRUAL SYNDROME

REACTIONS (6)
  - GALLBLADDER DISORDER [None]
  - PULMONARY EMBOLISM [None]
  - PAIN [None]
  - CHOLECYSTITIS ACUTE [None]
  - DEEP VEIN THROMBOSIS [None]
  - INJURY [None]
